FAERS Safety Report 7405579-3 (Version None)
Quarter: 2011Q2

REPORT INFORMATION
  Report Type: 
  Country: None (occurrence: None)
  Receive Date: 20110411
  Receipt Date: 20110328
  Transmission Date: 20111010
  Serious: Yes (Other)
  Sender: FDA-Public Use
  Company Number: PHHY2011FR16797

PATIENT
  Sex: Female
  Weight: 67 kg

DRUGS (3)
  1. LEVOTHYROX [Concomitant]
     Indication: HYPOTHYROIDISM
     Dosage: 112 UG PER DAY
  2. LAMISIL [Suspect]
     Indication: ONYCHOMYCOSIS
     Dosage: 250 MG, QD
     Route: 048
     Dates: start: 20071001, end: 20071101
  3. UN-ALFA [Concomitant]
     Indication: HYPOTHYROIDISM
     Dosage: 1 UG PER DAY

REACTIONS (2)
  - HEADACHE [None]
  - HYPERTENSION [None]
